FAERS Safety Report 8962891 (Version 3)
Quarter: 2013Q2

REPORT INFORMATION
  Report Type: Report from Study
  Country: DE (occurrence: DE)
  Receive Date: 20121213
  Receipt Date: 20130611
  Transmission Date: 20140414
  Serious: Yes (Hospitalization)
  Sender: FDA-Public Use
  Company Number: DE-ROCHE-1163925

PATIENT
  Age: 61 Year
  Sex: Female
  Weight: 86 kg

DRUGS (4)
  1. TRASTUZUMAB [Suspect]
     Indication: BREAST CANCER
     Dosage: LAST DOSE PRIOR TO SAE ON 19/NOV/2012
     Route: 042
     Dates: start: 20121008
  2. TRASTUZUMAB [Suspect]
     Dosage: LAST DOSE PRIOR TO SAE ON 19/NOV/2012
     Route: 042
  3. PACLITAXEL [Suspect]
     Indication: BREAST CANCER
     Dosage: LAST DOSE PRIOR TO SAE ON 26/NOV/2012
     Route: 042
     Dates: start: 20121008
  4. PERTUZUMAB [Suspect]
     Indication: BREAST CANCER
     Dosage: LAST DOSE PRIOR TO SAE ON 19/NOV/2012
     Route: 042
     Dates: start: 20121008

REACTIONS (1)
  - Paronychia [Recovered/Resolved]
